FAERS Safety Report 5450206-8 (Version None)
Quarter: 2007Q3

REPORT INFORMATION
  Report Type: 
  Country: None (occurrence: None)
  Receive Date: 20070912
  Receipt Date: 20070828
  Transmission Date: 20080115
  Serious: Yes (Hospitalization)
  Sender: FDA-Public Use
  Company Number: JP-PFIZER INC-2007022396

PATIENT
  Sex: Female

DRUGS (17)
  1. MIGLITOL [Suspect]
     Indication: DIABETES MELLITUS
     Route: 048
     Dates: start: 20070220, end: 20070303
  2. RIMATIL [Suspect]
     Indication: RHEUMATOID ARTHRITIS
     Dosage: DAILY DOSE:900MG
     Route: 048
     Dates: start: 20061201, end: 20070303
  3. OSTELUC [Suspect]
     Indication: RHEUMATOID ARTHRITIS
     Dosage: DAILY DOSE:200MG
     Route: 048
     Dates: start: 20070112, end: 20070303
  4. AMARYL [Concomitant]
     Indication: DIABETES MELLITUS
     Route: 048
  5. VALSARTAN [Concomitant]
     Indication: HYPERTENSION
     Route: 048
  6. PREDONINE [Concomitant]
     Indication: RHEUMATOID ARTHRITIS
     Route: 048
     Dates: start: 20061201, end: 20070303
  7. RABEPRAZOLE SODIUM [Concomitant]
     Route: 048
  8. ALLOPURINOL [Concomitant]
     Route: 048
  9. MAGNESIUM OXIDE [Concomitant]
     Route: 048
  10. BIOTAMIN [Concomitant]
     Route: 048
  11. MUCOSTA [Concomitant]
     Route: 048
  12. BASEN [Concomitant]
     Indication: DIABETES MELLITUS
     Dates: start: 20061225, end: 20070220
  13. LOXONIN [Concomitant]
     Indication: RHEUMATOID ARTHRITIS
     Route: 048
     Dates: end: 20070303
  14. CANDESARTAN CILEXETIL [Concomitant]
     Indication: HYPERTENSION
     Dosage: DAILY DOSE:8MG
     Route: 048
     Dates: start: 20061225, end: 20070303
  15. GLYCORAN [Concomitant]
     Indication: DIABETES MELLITUS
     Dosage: DAILY DOSE:500MG
     Route: 048
     Dates: start: 20061225, end: 20070303
  16. MOBILAT [Concomitant]
     Route: 048
     Dates: start: 20070101, end: 20070303
  17. FAMOTIDINE [Concomitant]
     Dates: start: 20070113, end: 20070303

REACTIONS (8)
  - ALANINE AMINOTRANSFERASE INCREASED [None]
  - ASPARTATE AMINOTRANSFERASE INCREASED [None]
  - BLOOD ALKALINE PHOSPHATASE INCREASED [None]
  - BLOOD BILIRUBIN INCREASED [None]
  - GAMMA-GLUTAMYLTRANSFERASE INCREASED [None]
  - HEPATIC ENZYME INCREASED [None]
  - JAUNDICE [None]
  - URTICARIA [None]
